FAERS Safety Report 25681038 (Version 1)
Quarter: 2025Q3

REPORT INFORMATION
  Report Type: Report from Study
  Country: US (occurrence: US)
  Receive Date: 20250814
  Receipt Date: 20250814
  Transmission Date: 20251021
  Serious: Yes (Other)
  Sender: ALEXION PHARMACEUTICALS
  Company Number: US-ASTRAZENECA-202508USA008022US

PATIENT
  Age: 11 Year
  Sex: Female

DRUGS (1)
  1. STRENSIQ [Suspect]
     Active Substance: ASFOTASE ALFA
     Indication: Phosphorus metabolism disorder
     Dosage: 50 MILLIGRAM, TIW
     Route: 065

REACTIONS (8)
  - Growth hormone deficiency [Unknown]
  - Torus fracture [Unknown]
  - Tooth fracture [Unknown]
  - Fatigue [Not Recovered/Not Resolved]
  - Bone density decreased [Unknown]
  - Hypermobility syndrome [Unknown]
  - Arthralgia [Unknown]
  - Fracture [Unknown]

NARRATIVE: CASE EVENT DATE: 20241201
